FAERS Safety Report 10887016 (Version 2)
Quarter: 2015Q1

REPORT INFORMATION
  Report Type: Spontaneous
  Country: US (occurrence: US)
  Receive Date: 20150304
  Receipt Date: 20150309
  Transmission Date: 20150721
  Serious: No
  Sender: FDA-Public Use
  Company Number: US-PFIZER INC-2015076555

PATIENT
  Age: 67 Year
  Sex: Male

DRUGS (2)
  1. SUTENT [Suspect]
     Active Substance: SUNITINIB MALATE
     Indication: GASTRIC CANCER
     Dosage: 50 MG, UNK
     Dates: start: 2007
  2. SUTENT [Suspect]
     Active Substance: SUNITINIB MALATE
     Dosage: 37.5 UNK,
     Dates: start: 2007

REACTIONS (16)
  - Retching [Unknown]
  - Abdominal discomfort [Unknown]
  - Dysgeusia [Unknown]
  - Rash [Unknown]
  - Dyspnoea [Unknown]
  - Cough [Unknown]
  - Stomatitis [Unknown]
  - Peripheral swelling [Unknown]
  - Decreased appetite [Unknown]
  - Epistaxis [Unknown]
  - Fatigue [Unknown]
  - Asthenia [Unknown]
  - Flatulence [Unknown]
  - Diarrhoea [Unknown]
  - Nausea [Unknown]
  - Skin irritation [Unknown]
